FAERS Safety Report 8913946 (Version 2)
Quarter: 2012Q4

REPORT INFORMATION
  Report Type: 
  Country: US (occurrence: US)
  Receive Date: 20121116
  Receipt Date: 20121210
  Transmission Date: 20130627
  Serious: Yes (Hospitalization)
  Sender: FDA-Public Use
  Company Number: US-BIOGENIDEC-2012BI052994

PATIENT
  Age: 50 Year
  Sex: Female

DRUGS (1)
  1. AVONEX [Suspect]
     Indication: MULTIPLE SCLEROSIS
     Route: 030
     Dates: start: 20101203

REACTIONS (5)
  - Mobility decreased [Recovered/Resolved]
  - Central nervous system lesion [Unknown]
  - Multiple sclerosis [Unknown]
  - Cystitis [Recovered/Resolved]
  - Asthenia [Recovered/Resolved]
